FAERS Safety Report 15250400 (Version 2)
Quarter: 2018Q3

REPORT INFORMATION
  Report Type: Report from Study
  Country: US (occurrence: US)
  Receive Date: 20180807
  Receipt Date: 20180815
  Transmission Date: 20181010
  Serious: Yes (Hospitalization)
  Sender: FDA-Public Use
  Company Number: US-ROCHE-2165155

PATIENT
  Age: 78 Year
  Sex: Female
  Weight: 67.4 kg

DRUGS (1)
  1. ATEZOLIZUMAB. [Suspect]
     Active Substance: ATEZOLIZUMAB
     Indication: NON-SMALL CELL LUNG CANCER
     Route: 042
     Dates: start: 20180316

REACTIONS (5)
  - Blood bilirubin increased [Unknown]
  - Hepatitis [Recovering/Resolving]
  - Fatigue [Unknown]
  - Drug-induced liver injury [Unknown]
  - Liver function test increased [Unknown]

NARRATIVE: CASE EVENT DATE: 20180424
